FAERS Safety Report 12213259 (Version 2)
Quarter: 2016Q2

REPORT INFORMATION
  Report Type: Spontaneous
  Country: IN (occurrence: IN)
  Receive Date: 20160328
  Receipt Date: 20160405
  Transmission Date: 20160815
  Serious: Yes (Hospitalization, Other)
  Sender: FDA-Public Use
  Company Number: IN-MACLEODS PHARMACEUTICALS US LTD-MAC2016002556

PATIENT

DRUGS (2)
  1. LORAZEPAM. [Concomitant]
     Active Substance: LORAZEPAM
     Indication: BIPOLAR DISORDER
     Dosage: 2 MG INTERMITTENTLY
     Route: 065
  2. OLANZAPINE. [Suspect]
     Active Substance: OLANZAPINE
     Indication: BIPOLAR DISORDER
     Dosage: 5 MG, QD
     Route: 065

REACTIONS (12)
  - Dyspnoea [Recovering/Resolving]
  - Swelling [Recovering/Resolving]
  - Diabetes mellitus [Recovering/Resolving]
  - Chest pain [Recovering/Resolving]
  - Weight increased [Recovering/Resolving]
  - Generalised oedema [Recovering/Resolving]
  - Hypercholesterolaemia [Recovering/Resolving]
  - Congestive cardiomyopathy [Recovering/Resolving]
  - Cardiac failure [Recovering/Resolving]
  - Eosinophilia [Recovering/Resolving]
  - Electrocardiogram QT prolonged [Recovering/Resolving]
  - Toxicity to various agents [Recovering/Resolving]

NARRATIVE: CASE EVENT DATE: 201205
